FAERS Safety Report 21975022 (Version 1)
Quarter: 2023Q1

REPORT INFORMATION
  Report Type: Spontaneous
  Country: JP (occurrence: JP)
  Receive Date: 20230209
  Receipt Date: 20230209
  Transmission Date: 20230417
  Serious: Yes (Other)
  Sender: FDA-Public Use
  Company Number: JP-BAUSCHBL-2023BNL001086

PATIENT
  Age: 9 Decade
  Sex: Male

DRUGS (7)
  1. BEPOTASTINE [Suspect]
     Active Substance: BEPOTASTINE
     Indication: Cough
     Route: 065
  2. CLARITHROMYCIN [Suspect]
     Active Substance: CLARITHROMYCIN
     Indication: Cough
     Route: 065
  3. IRSOGLADINE MALEATE [Suspect]
     Active Substance: IRSOGLADINE MALEATE
     Indication: Cough
     Route: 065
  4. CARBOCYSTEINE [Suspect]
     Active Substance: CARBOCYSTEINE
     Indication: Cough
     Route: 065
  5. TIPEPIDINE HIBENZATE [Suspect]
     Active Substance: TIPEPIDINE HIBENZATE
     Indication: Cough
     Route: 065
  6. LEUPROLIDE ACETATE [Concomitant]
     Active Substance: LEUPROLIDE ACETATE
     Indication: Prostate cancer
     Route: 065
  7. BICALUTAMIDE [Concomitant]
     Active Substance: BICALUTAMIDE
     Indication: Prostate cancer
     Route: 065

REACTIONS (2)
  - Myoclonus [Recovered/Resolved]
  - Dyskinesia [Recovered/Resolved]
